FAERS Safety Report 5272133-1 (Version None)
Quarter: 2007Q1

REPORT INFORMATION
  Report Type: 
  Country: None (occurrence: None)
  Receive Date: 20070320
  Receipt Date: 20070320
  Transmission Date: 20070707
  Serious: Yes (Other)
  Sender: FDA-Public Use
  Company Number: None

PATIENT
  Age: 69 Year
  Sex: Male
  Weight: 87.9978 kg

DRUGS (1)
  1. METOLAZONE [Suspect]
     Indication: FLUID RETENTION
     Dosage: 1 TABLET ONCE DAILY PO
     Route: 048
     Dates: start: 20070308, end: 20070311

REACTIONS (1)
  - RASH ERYTHEMATOUS [None]
